FAERS Safety Report 23000250 (Version 3)
Quarter: 2023Q4

REPORT INFORMATION
  Report Type: Spontaneous
  Country: US (occurrence: US)
  Receive Date: 20230928
  Receipt Date: 20231103
  Transmission Date: 20240110
  Serious: Yes (Other)
  Sender: FDA-Public Use
  Company Number: US-BRISTOL-MYERS SQUIBB COMPANY-2023-137328

PATIENT
  Age: 71 Year
  Sex: Female

DRUGS (2)
  1. REVLIMID [Suspect]
     Active Substance: LENALIDOMIDE
     Indication: Malignant melanoma
  2. REVLIMID [Suspect]
     Active Substance: LENALIDOMIDE
     Indication: Plasma cell myeloma
     Dosage: QD (EVERYDAY) FOR 14 DAYS ON THEN 7 DAYS OFF
     Route: 048

REACTIONS (7)
  - Brain fog [Recovering/Resolving]
  - Back pain [Recovering/Resolving]
  - Arthritis [Recovering/Resolving]
  - Photopsia [Recovering/Resolving]
  - Syncope [Recovering/Resolving]
  - Headache [Unknown]
  - Off label use [Unknown]
